FAERS Safety Report 8694573 (Version 2)
Quarter: 2013Q1

REPORT INFORMATION
  Report Type: Spontaneous
  Country: US (occurrence: US)
  Receive Date: 20120731
  Receipt Date: 20130125
  Transmission Date: 20140127
  Serious: Yes (Hospitalization, Disabling, Other)
  Sender: FDA-Public Use
  Company Number: US-009507513-1207USA008786

PATIENT
  Sex: 0

DRUGS (2)
  1. NUVARING [Suspect]
     Indication: CONTRACEPTION
     Dosage: UNK
     Route: 067
     Dates: start: 200506, end: 200508
  2. SYNTHROID [Concomitant]
     Indication: HYPOTHYROIDISM
     Dosage: .125 MG, QD
     Route: 048
     Dates: start: 199006

REACTIONS (2)
  - Pulmonary embolism [Unknown]
  - Pneumonia [Unknown]
